FAERS Safety Report 4597185-3 (Version None)
Quarter: 2005Q1

REPORT INFORMATION
  Report Type: 
  Country: None (occurrence: None)
  Receive Date: 20050301
  Receipt Date: 20050215
  Transmission Date: 20050727
  Serious: Yes (Life-Threatening, Hospitalization)
  Sender: FDA-Public Use
  Company Number: HQWYE394517FEB05

PATIENT
  Age: 44 Year
  Sex: Male

DRUGS (11)
  1. ARTANE [Suspect]
     Indication: SCHIZOPHRENIA
     Dosage: 6 MG 1X PER 1 DAY; ORAL
     Route: 048
     Dates: start: 20020401, end: 20050105
  2. CAFEINE (CAFEINE, ) [Suspect]
     Indication: NASOPHARYNGITIS
     Dates: start: 20050122, end: 20050123
  3. LYSOZYME (LYSOZYME, ) [Suspect]
     Indication: NASOPHARYNGITIS
     Dates: start: 20050122, end: 20050123
  4. UNSPECIFIED ANTI-INFLAMMATORY AGENT (UNSPECIFIED ANTI-INFLAMMATORY AGE [Suspect]
     Indication: NASOPHARYNGITIS
     Dates: start: 20050122, end: 20050123
  5. UNSPECIFIED ANTIHISTAMINE (UNSPECIFIED ANTIHISTAMINE, UNSPEC) [Suspect]
     Indication: NASOPHARYNGITIS
     Dates: start: 20050122, end: 20050123
  6. UNSPECIFIED ANTITUSSIVE (UNSPECIFIED ANTITUSSIVE, UNSPEC) [Suspect]
     Indication: NASOPHARYNGITIS
     Dates: start: 20050122, end: 20050123
  7. UNSPECIFIED VITAMINS (UNSPECIFIED VITAMINS, UNSPEC) [Suspect]
     Indication: NASOPHARYNGITIS
     Dates: start: 20050122, end: 20050123
  8. BUFFERIN [Concomitant]
  9. RISPERDAL [Concomitant]
  10. VEGETAMIN A (CHLORPROMAZINE HYDROCHLORIDE/PHENOBARBITAL/PROMETHAZINE) [Concomitant]
  11. ROHYPNOL (FLUNITRAZEPAM) [Concomitant]

REACTIONS (2)
  - DEPRESSED LEVEL OF CONSCIOUSNESS [None]
  - RHABDOMYOLYSIS [None]
